FAERS Safety Report 18158754 (Version 3)
Quarter: 2020Q3

REPORT INFORMATION
  Report Type: Spontaneous
  Country: DE (occurrence: DE)
  Receive Date: 20200817
  Receipt Date: 20200911
  Transmission Date: 20201103
  Serious: Yes (Hospitalization, Other)
  Sender: FDA-Public Use
  Company Number: NVSC2020DE007021

PATIENT
  Sex: Male
  Weight: 110 kg

DRUGS (30)
  1. VALSARTAN ? 1 A PHARMA PLUS 160 MG/12,5 MG FILMTABLETTEN [Suspect]
     Active Substance: HYDROCHLOROTHIAZIDE\VALSARTAN
     Dosage: 1 DF
     Route: 065
     Dates: start: 20171006
  2. AMLODIPINE [Concomitant]
     Active Substance: AMLODIPINE BESYLATE
     Dosage: 5 DF, QD NOON
     Route: 065
  3. CANDESARTAN. [Concomitant]
     Active Substance: CANDESARTAN
     Indication: HYPERTENSION
     Dosage: 1 DF 16/12.5 (DAILY)
     Route: 065
     Dates: start: 2018
  4. VALSARTAN COMP [Concomitant]
     Active Substance: HYDROCHLOROTHIAZIDE\VALSARTAN
     Dosage: 1 DF
     Route: 065
     Dates: start: 20161207
  5. VALSARTAN ? 1 A PHARMA PLUS 160 MG/12,5 MG FILMTABLETTEN [Suspect]
     Active Substance: HYDROCHLOROTHIAZIDE\VALSARTAN
     Dosage: 1 DF
     Route: 065
     Dates: start: 20130604
  6. VALSARTAN ? 1 A PHARMA PLUS 160 MG/12,5 MG FILMTABLETTEN [Suspect]
     Active Substance: HYDROCHLOROTHIAZIDE\VALSARTAN
     Dosage: 1 DF
     Route: 065
     Dates: start: 20140801
  7. VALSARTAN ? 1 A PHARMA PLUS 160 MG/12,5 MG FILMTABLETTEN [Suspect]
     Active Substance: HYDROCHLOROTHIAZIDE\VALSARTAN
     Dosage: 1 DF
     Route: 065
     Dates: start: 20141112
  8. VALSARTAN HEXAL 160 MG FILMTABLETTEN [Suspect]
     Active Substance: VALSARTAN
     Indication: HYPERTENSION
     Dosage: 1 DF
     Route: 065
     Dates: start: 2014, end: 2014
  9. VALSARTAN HEXAL 160 MG FILMTABLETTEN [Suspect]
     Active Substance: VALSARTAN
     Dosage: 1 DF
     Route: 065
     Dates: start: 20130603
  10. HYDROCHLOROTHIAZIDE. [Concomitant]
     Active Substance: HYDROCHLOROTHIAZIDE
     Indication: PRODUCT USED FOR UNKNOWN INDICATION
     Dosage: UNK
     Route: 065
  11. VALSARTAN HEXAL 160 MG FILMTABLETTEN [Suspect]
     Active Substance: VALSARTAN
     Dosage: 1 DF
     Route: 065
     Dates: start: 20140124
  12. VALSARTAN ACTAVIS COMP [Concomitant]
     Active Substance: HYDROCHLOROTHIAZIDE\VALSARTAN
     Dosage: 1 DF
     Route: 065
     Dates: start: 20151102
  13. VALSARTAN ? 1 A PHARMA PLUS 160 MG/12,5 MG FILMTABLETTEN [Suspect]
     Active Substance: HYDROCHLOROTHIAZIDE\VALSARTAN
     Indication: HYPERTENSION
     Dosage: 1 DF, QD ONCE DAILY MORNING
     Route: 048
     Dates: start: 20130429, end: 20180828
  14. VALSARTAN ? 1 A PHARMA PLUS 160 MG/12,5 MG FILMTABLETTEN [Suspect]
     Active Substance: HYDROCHLOROTHIAZIDE\VALSARTAN
     Dosage: 1 DF
     Route: 065
     Dates: start: 20130827
  15. VALSARTAN ? 1 A PHARMA PLUS 160 MG/12,5 MG FILMTABLETTEN [Suspect]
     Active Substance: HYDROCHLOROTHIAZIDE\VALSARTAN
     Dosage: 1 DF
     Route: 065
     Dates: start: 20160404
  16. VALSARTAN ? 1 A PHARMA PLUS 160 MG/12,5 MG FILMTABLETTEN [Suspect]
     Active Substance: HYDROCHLOROTHIAZIDE\VALSARTAN
     Dosage: 160 MG
     Route: 065
     Dates: start: 2014, end: 2014
  17. VALSARTAN COMP [Concomitant]
     Active Substance: HYDROCHLOROTHIAZIDE\VALSARTAN
     Dosage: 1 DF
     Route: 065
     Dates: start: 20160919
  18. VALSARTAN ? 1 A PHARMA PLUS 160 MG/12,5 MG FILMTABLETTEN [Suspect]
     Active Substance: HYDROCHLOROTHIAZIDE\VALSARTAN
     Dosage: 1 DF
     Route: 065
     Dates: start: 20140121
  19. VALSARTAN ? 1 A PHARMA PLUS 160 MG/12,5 MG FILMTABLETTEN [Suspect]
     Active Substance: HYDROCHLOROTHIAZIDE\VALSARTAN
     Dosage: 1 DF
     Route: 065
     Dates: start: 20140430
  20. VALSARTAN ? 1 A PHARMA PLUS 160 MG/12,5 MG FILMTABLETTEN [Suspect]
     Active Substance: HYDROCHLOROTHIAZIDE\VALSARTAN
     Dosage: 1 DF
     Route: 065
     Dates: start: 20170322
  21. VALSARTAN HEXAL 160 MG FILMTABLETTEN [Suspect]
     Active Substance: VALSARTAN
     Dosage: UNK
     Route: 065
  22. VALSARTAN ACTAVIS COMP [Concomitant]
     Active Substance: HYDROCHLOROTHIAZIDE\VALSARTAN
     Indication: PRODUCT USED FOR UNKNOWN INDICATION
     Dosage: 1 DF
     Route: 065
     Dates: start: 20150215
  23. VALSARTAN HEXAL 160 MG FILMTABLETTEN [Suspect]
     Active Substance: VALSARTAN
     Dosage: 1 DF
     Route: 065
     Dates: start: 20130827
  24. AMLODIPINE [Concomitant]
     Active Substance: AMLODIPINE BESYLATE
     Indication: PRODUCT USED FOR UNKNOWN INDICATION
     Dosage: 5 MG (2 TIMES DAILY MORNING AND EVENING)
     Route: 065
  25. VALSARTAN COMP [Concomitant]
     Active Substance: HYDROCHLOROTHIAZIDE\VALSARTAN
     Indication: PRODUCT USED FOR UNKNOWN INDICATION
     Dosage: 1 DF
     Route: 065
     Dates: start: 20150506
  26. VALSARTAN COMP [Concomitant]
     Active Substance: HYDROCHLOROTHIAZIDE\VALSARTAN
     Dosage: 1 DF
     Route: 065
     Dates: start: 20150817
  27. VALSARTAN COMP [Concomitant]
     Active Substance: HYDROCHLOROTHIAZIDE\VALSARTAN
     Dosage: 1 DF
     Route: 065
     Dates: start: 20160712
  28. XIPAMIDE [Concomitant]
     Active Substance: XIPAMIDE
     Indication: PRODUCT USED FOR UNKNOWN INDICATION
     Dosage: UNK
     Route: 065
  29. VALSARTAN ? 1 A PHARMA PLUS 160 MG/12,5 MG FILMTABLETTEN [Suspect]
     Active Substance: HYDROCHLOROTHIAZIDE\VALSARTAN
     Dosage: 1 DF
     Route: 065
     Dates: start: 20170706
  30. VALSARTAN HEXAL 160 MG FILMTABLETTEN [Suspect]
     Active Substance: VALSARTAN
     Dosage: 160 MG, QD, EVENING
     Route: 065
     Dates: start: 20130429, end: 2014

REACTIONS (41)
  - Weight increased [Unknown]
  - Hyperlipidaemia [Unknown]
  - Brain neoplasm [Unknown]
  - Aortic arteriosclerosis [Unknown]
  - Sleep apnoea syndrome [Unknown]
  - Hypopnoea [Unknown]
  - Myosclerosis [Unknown]
  - Disturbance in attention [Unknown]
  - Apathy [Unknown]
  - Snoring [Unknown]
  - Left atrial dilatation [Unknown]
  - Muscle disorder [Unknown]
  - Onychomycosis [Unknown]
  - Product contamination [Unknown]
  - Macroglossia [Unknown]
  - Emotional distress [Unknown]
  - Merycism [Unknown]
  - Dizziness [Unknown]
  - Rapid eye movement sleep behaviour disorder [Unknown]
  - Choking [Unknown]
  - Sleep disorder [Unknown]
  - Dyspnoea [Unknown]
  - Restlessness [Unknown]
  - Depression [Recovering/Resolving]
  - Arthralgia [Unknown]
  - Musculoskeletal discomfort [Unknown]
  - Head discomfort [Unknown]
  - Insomnia [Unknown]
  - Prostatic specific antigen increased [Unknown]
  - Diastolic dysfunction [Recovering/Resolving]
  - Panic attack [Unknown]
  - Tremor [Unknown]
  - Obesity [Unknown]
  - Proctitis [Unknown]
  - Basal cell carcinoma [Unknown]
  - Fear [Unknown]
  - Hyperhidrosis [Unknown]
  - Atrial pressure increased [Unknown]
  - Somatic symptom disorder [Unknown]
  - Tinnitus [Unknown]
  - Urinary incontinence [Not Recovered/Not Resolved]

NARRATIVE: CASE EVENT DATE: 20140128
